FAERS Safety Report 8304314 (Version 7)
Quarter: 2014Q2

REPORT INFORMATION
  Report Type: Report from Study
  Country: CA (occurrence: CA)
  Receive Date: 20111221
  Receipt Date: 20140613
  Transmission Date: 20141212
  Serious: Yes (Death, Hospitalization, Other)
  Sender: FDA-Public Use
  Company Number: PHHY2011CA107815

PATIENT
  Age: 70 Year
  Sex: Male

DRUGS (3)
  1. SANDOSTATIN LAR [Suspect]
     Indication: NEUROENDOCRINE CARCINOMA METASTATIC
     Dosage: 30 MG, EVERY 4 WEEKS
     Route: 030
     Dates: start: 20101202
  2. SANDOSTATIN LAR [Suspect]
     Dosage: 60 MG, EVERY 4 WEEKS
     Route: 030
  3. RAMIPRIL [Concomitant]

REACTIONS (7)
  - Death [Fatal]
  - Pleural mesothelioma [Unknown]
  - Second primary malignancy [Unknown]
  - Blood pressure increased [Unknown]
  - Nephrolithiasis [Recovered/Resolved]
  - Bronchitis [Unknown]
  - Arrhythmia [Unknown]
